FAERS Safety Report 25314716 (Version 3)
Quarter: 2025Q4

REPORT INFORMATION
  Report Type: Spontaneous
  Country: EU (occurrence: EU)
  Receive Date: 20250514
  Receipt Date: 20251030
  Transmission Date: 20260118
  Serious: Yes (Other)
  Sender: BAUSCH AND LOMB
  Company Number: EU-LEO Pharma-379732

PATIENT
  Age: 77 Year
  Sex: Male

DRUGS (3)
  1. BRODALUMAB [Suspect]
     Active Substance: BRODALUMAB
     Indication: Psoriasis
     Route: 065
     Dates: start: 20231009
  2. BRODALUMAB [Suspect]
     Active Substance: BRODALUMAB
     Route: 065
     Dates: start: 202401
  3. BRODALUMAB [Suspect]
     Active Substance: BRODALUMAB
     Route: 065
     Dates: start: 202410, end: 20250224

REACTIONS (2)
  - Hepatocellular carcinoma [Unknown]
  - Product use issue [Recovered/Resolved]

NARRATIVE: CASE EVENT DATE: 20231001
